FAERS Safety Report 5410824-X (Version None)
Quarter: 2007Q3

REPORT INFORMATION
  Report Type: 
  Country: None (occurrence: None)
  Receive Date: 20070810
  Receipt Date: 20070807
  Transmission Date: 20080115
  Serious: Yes (Life-Threatening, Hospitalization, Other)
  Sender: FDA-Public Use
  Company Number: PHMT2007CA01495

PATIENT
  Age: 21 Year
  Sex: Male

DRUGS (2)
  1. CLOZARIL [Suspect]
     Indication: SCHIZOPHRENIA
     Dosage: TITRATION
     Route: 048
     Dates: start: 20070607, end: 20070622
  2. OLANZAPINE [Concomitant]
     Dosage: 20 MG TO 0 MG AS CLOZAPINE TITRATED INCREASE

REACTIONS (9)
  - CARDIAC OUTPUT DECREASED [None]
  - DIALYSIS [None]
  - HYPOTENSION [None]
  - INTUBATION [None]
  - MYOCARDITIS [None]
  - PNEUMONIA STREPTOCOCCAL [None]
  - RENAL FAILURE ACUTE [None]
  - RESPIRATORY DISTRESS [None]
  - SHOCK [None]
